FAERS Safety Report 4626834-6 (Version None)
Quarter: 2005Q2

REPORT INFORMATION
  Report Type: 
  Country: None (occurrence: None)
  Receive Date: 20050405
  Receipt Date: 20050324
  Transmission Date: 20051028
  Serious: Yes (Hospitalization)
  Sender: FDA-Public Use
  Company Number: US-BRISTOL-MYERS SQUIBB COMPANY-12911988

PATIENT
  Age: 55 Year
  Sex: Female

DRUGS (8)
  1. ABILIFY [Suspect]
  2. NEURONTIN [Concomitant]
  3. BACLOFEN [Concomitant]
  4. LEXAPRO [Concomitant]
  5. KEPPRA [Concomitant]
  6. INDERAL LA [Concomitant]
  7. ORAP [Concomitant]
  8. IMIPRAMINE [Concomitant]

REACTIONS (4)
  - DYSKINESIA [None]
  - HYPOTENSION [None]
  - LOSS OF CONSCIOUSNESS [None]
  - PYREXIA [None]
